FAERS Safety Report 8111963-5 (Version None)
Quarter: 2012Q1

REPORT INFORMATION
  Report Type: 
  Country: None (occurrence: None)
  Receive Date: 20120203
  Receipt Date: 20111013
  Transmission Date: 20120608
  Serious: Yes (Hospitalization)
  Sender: FDA-Public Use
  Company Number: US-GLAXOSMITHKLINE-A0948974A

PATIENT
  Age: 76 Year
  Sex: Male

DRUGS (18)
  1. ATENOLOL [Concomitant]
  2. PRAVASTATIN [Concomitant]
  3. SPIRONOLACTONE [Concomitant]
  4. LEVEMIR [Concomitant]
  5. TAXOL [Concomitant]
  6. DEXAMETHASONE [Concomitant]
  7. FUROSEMIDE [Concomitant]
  8. OXYCODONE HCL [Concomitant]
  9. STOOL SOFTENER [Concomitant]
  10. MUPIROCIN [Concomitant]
  11. ISOSORBIDE MONONITRATE [Concomitant]
  12. FENTANYL-100 [Concomitant]
  13. AMIODARONE HYDROCHLORIDE [Concomitant]
  14. SULFAMETHOXAZOLE [Concomitant]
  15. ARIXTRA [Suspect]
     Indication: THROMBOSIS
     Dosage: 7.5MG PER DAY
     Route: 058
     Dates: start: 20110601, end: 20110905
  16. LAXATIVES [Concomitant]
  17. LEVOTHYROXINE SODIUM [Concomitant]
  18. ONDANSETRON [Concomitant]

REACTIONS (1)
  - URINARY BLADDER HAEMORRHAGE [None]
